FAERS Safety Report 12425933 (Version 2)
Quarter: 2018Q3

REPORT INFORMATION
  Report Type: Report from Study
  Country: US (occurrence: US)
  Receive Date: 20160601
  Receipt Date: 20180821
  Transmission Date: 20181010
  Serious: No
  Sender: FDA-Public Use
  Company Number: US-SA-2016SA084939

PATIENT
  Age: 65 Year
  Sex: Male

DRUGS (1)
  1. ELIGLUSTAT. [Suspect]
     Active Substance: ELIGLUSTAT
     Indication: GAUCHER^S DISEASE
     Dosage: 1 PILL (84.0), QD
     Route: 048
     Dates: start: 20141124, end: 20180615

REACTIONS (1)
  - Intentional underdose [Unknown]
